FAERS Safety Report 5616196-X (Version None)
Quarter: 2008Q1

REPORT INFORMATION
  Report Type: 
  Country: None (occurrence: None)
  Receive Date: 20080206
  Receipt Date: 20080130
  Transmission Date: 20080703
  Serious: Yes (Other)
  Sender: FDA-Public Use
  Company Number: JP-MERCK-0801USA04460

PATIENT
  Age: 86 Year
  Sex: Male

DRUGS (5)
  1. TRUSOPT [Suspect]
     Indication: GLAUCOMA
     Route: 047
     Dates: start: 20051202, end: 20080116
  2. TRUSOPT [Suspect]
     Route: 047
     Dates: start: 20020513, end: 20050701
  3. HYALEIN [Concomitant]
     Route: 047
     Dates: start: 20060203
  4. AZULENE [Concomitant]
     Route: 047
     Dates: start: 20071221
  5. CHONDROITIN ZS [Concomitant]
     Route: 047
     Dates: start: 20070130

REACTIONS (1)
  - VISUAL ACUITY REDUCED [None]
